FAERS Safety Report 5412822-9 (Version None)
Quarter: 2007Q3

REPORT INFORMATION
  Report Type: 
  Country: None (occurrence: None)
  Receive Date: 20070810
  Receipt Date: 20061003
  Transmission Date: 20080115
  Serious: Yes (Hospitalization)
  Sender: FDA-Public Use
  Company Number: 2006US001965

PATIENT
  Age: 4 Year
  Sex: Male
  Weight: 19 kg

DRUGS (13)
  1. PROGRAF [Suspect]
     Indication: PROPHYLAXIS AGAINST TRANSPLANT REJECTION
  2. ZENAPAX [Suspect]
     Indication: RENAL TRANSPLANT
     Dosage: SEE IMAGE
     Route: 042
     Dates: start: 20050307, end: 20050307
  3. ZENAPAX [Suspect]
     Indication: RENAL TRANSPLANT
     Dosage: SEE IMAGE
     Route: 042
     Dates: start: 20050323, end: 20050323
  4. ZENAPAX [Suspect]
     Indication: RENAL TRANSPLANT
     Dosage: SEE IMAGE
     Route: 042
     Dates: start: 20050405, end: 20050405
  5. ZENAPAX [Suspect]
     Indication: RENAL TRANSPLANT
     Dosage: SEE IMAGE
     Route: 042
     Dates: start: 20050420, end: 20050420
  6. ZENAPAX [Suspect]
     Indication: RENAL TRANSPLANT
     Dosage: SEE IMAGE
     Route: 042
     Dates: start: 20050505, end: 20050505
  7. ZENAPAX [Suspect]
     Indication: RENAL TRANSPLANT
     Dosage: SEE IMAGE
     Route: 042
     Dates: start: 20050525, end: 20050525
  8. ZENAPAX [Suspect]
     Indication: RENAL TRANSPLANT
     Dosage: SEE IMAGE
     Route: 042
     Dates: start: 20050628, end: 20050628
  9. ZENAPAX [Suspect]
     Indication: RENAL TRANSPLANT
     Dosage: SEE IMAGE
     Route: 042
     Dates: start: 20050719, end: 20050719
  10. ZENAPAX [Suspect]
     Indication: RENAL TRANSPLANT
     Dosage: SEE IMAGE
     Route: 042
     Dates: start: 20050818, end: 20050818
  11. EPOGEN [Concomitant]
  12. CELLCEPT [Concomitant]
  13. DITROPAN [Concomitant]

REACTIONS (2)
  - HYDRONEPHROSIS [None]
  - PYELONEPHRITIS [None]
